FAERS Safety Report 9363397 (Version 1)
Quarter: 2013Q2

REPORT INFORMATION
  Report Type: Spontaneous
  Country: GB (occurrence: GB)
  Receive Date: 20130624
  Receipt Date: 20130624
  Transmission Date: 20140414
  Serious: Yes (Other)
  Sender: FDA-Public Use
  Company Number: GB-JNJFOC-20130606731

PATIENT
  Age: 26 Year
  Sex: Female

DRUGS (30)
  1. CO-CODAMOL [Suspect]
     Indication: RHEUMATOID ARTHRITIS
     Route: 065
  2. CO-CODAMOL [Suspect]
     Indication: MYALGIA
     Route: 065
  3. CO-CODAMOL [Suspect]
     Indication: OSTEOPOROSIS
     Route: 065
  4. CO-CODAMOL [Suspect]
     Indication: OSTEOARTHRITIS
     Route: 065
  5. CO-CODAMOL [Suspect]
     Indication: HYPERMOBILITY SYNDROME
     Route: 065
  6. CO-CODAMOL [Suspect]
     Indication: PAIN
     Route: 065
  7. DICLOFENAC [Suspect]
     Indication: RHEUMATOID ARTHRITIS
     Route: 065
  8. DICLOFENAC [Suspect]
     Indication: MYALGIA
     Route: 065
  9. DICLOFENAC [Suspect]
     Indication: OSTEOPOROSIS
     Route: 065
  10. DICLOFENAC [Suspect]
     Indication: OSTEOARTHRITIS
     Route: 065
  11. DICLOFENAC [Suspect]
     Indication: HYPERMOBILITY SYNDROME
     Route: 065
  12. DICLOFENAC [Suspect]
     Indication: PAIN
     Route: 065
  13. LEFLUNOMIDE [Suspect]
     Indication: RHEUMATOID ARTHRITIS
     Route: 065
  14. LEFLUNOMIDE [Suspect]
     Indication: MYALGIA
     Route: 065
  15. LEFLUNOMIDE [Suspect]
     Indication: OSTEOPOROSIS
     Route: 065
  16. LEFLUNOMIDE [Suspect]
     Indication: OSTEOARTHRITIS
     Route: 065
  17. LEFLUNOMIDE [Suspect]
     Indication: HYPERMOBILITY SYNDROME
     Route: 065
  18. LEFLUNOMIDE [Suspect]
     Indication: PAIN
     Route: 065
  19. NAPROXEN [Suspect]
     Indication: RHEUMATOID ARTHRITIS
     Route: 065
  20. NAPROXEN [Suspect]
     Indication: MYALGIA
     Route: 065
  21. NAPROXEN [Suspect]
     Indication: OSTEOPOROSIS
     Route: 065
  22. NAPROXEN [Suspect]
     Indication: OSTEOARTHRITIS
     Route: 065
  23. NAPROXEN [Suspect]
     Indication: HYPERMOBILITY SYNDROME
     Route: 065
  24. NAPROXEN [Suspect]
     Indication: PAIN
     Route: 065
  25. TRAMADOL HYDROCHLORIDE [Suspect]
     Indication: RHEUMATOID ARTHRITIS
     Route: 065
  26. TRAMADOL HYDROCHLORIDE [Suspect]
     Indication: MYALGIA
     Route: 065
  27. TRAMADOL HYDROCHLORIDE [Suspect]
     Indication: OSTEOPOROSIS
     Route: 065
  28. TRAMADOL HYDROCHLORIDE [Suspect]
     Indication: OSTEOARTHRITIS
     Route: 065
  29. TRAMADOL HYDROCHLORIDE [Suspect]
     Indication: HYPERMOBILITY SYNDROME
     Route: 065
  30. TRAMADOL HYDROCHLORIDE [Suspect]
     Indication: PAIN
     Route: 065

REACTIONS (2)
  - Suicidal ideation [Unknown]
  - Drug ineffective [Unknown]
